FAERS Safety Report 16627295 (Version 2)
Quarter: 2019Q3

REPORT INFORMATION
  Report Type: Spontaneous
  Country: JP (occurrence: JP)
  Receive Date: 20190724
  Receipt Date: 20190808
  Transmission Date: 20191004
  Serious: Yes (Hospitalization, Other)
  Sender: FDA-Public Use
  Company Number: PHJP2019JP009431

PATIENT
  Age: 52 Year
  Sex: Female

DRUGS (1)
  1. TASIGNA [Suspect]
     Active Substance: NILOTINIB
     Indication: CHRONIC MYELOID LEUKAEMIA
     Dosage: 300 MG, BID
     Route: 048
     Dates: start: 20160912, end: 20190305

REACTIONS (12)
  - Generalised oedema [Unknown]
  - Cholelithiasis [Unknown]
  - Cardiomegaly [Unknown]
  - Arthralgia [Unknown]
  - Drug withdrawal syndrome [Unknown]
  - Pericardial effusion [Unknown]
  - Nephrotic syndrome [Unknown]
  - Pleural effusion [Unknown]
  - Chest discomfort [Unknown]
  - Pyrexia [Unknown]
  - Chills [Unknown]
  - Systemic lupus erythematosus [Unknown]

NARRATIVE: CASE EVENT DATE: 20190206
